FAERS Safety Report 19871084 (Version 1)
Quarter: 2021Q3

REPORT INFORMATION
  Report Type: Spontaneous
  Country: RO (occurrence: RO)
  Receive Date: 20210923
  Receipt Date: 20210923
  Transmission Date: 20211014
  Serious: Yes (Other)
  Sender: FDA-Public Use
  Company Number: RO-SUN PHARMACEUTICAL INDUSTRIES LTD-2021RR-312154

PATIENT
  Age: 30 Year
  Sex: Male

DRUGS (6)
  1. AMISULPRIDE [Suspect]
     Active Substance: AMISULPRIDE
     Indication: PSYCHOTIC DISORDER
     Dosage: 600 MILLIGRAM, DAILY
     Route: 065
  2. VALPROIC ACID. [Suspect]
     Active Substance: VALPROIC ACID
     Indication: PSYCHOTIC DISORDER
     Dosage: 1000 MILLIGRAM, DAILY
     Route: 065
     Dates: start: 2014
  3. RISPERIDONE. [Suspect]
     Active Substance: RISPERIDONE
     Indication: PSYCHOTIC DISORDER
     Dosage: 6 MILLIGRAM, DAILY
     Route: 048
     Dates: start: 2014
  4. TRIHEXYPHENIDYL [Suspect]
     Active Substance: TRIHEXYPHENIDYL
     Indication: PSYCHOTIC DISORDER
     Dosage: 4 MILLIGRAM, DAILY
     Route: 065
  5. ZOPICLONE [Suspect]
     Active Substance: ZOPICLONE
     Indication: PSYCHOTIC DISORDER
     Dosage: 7.5 MILLIGRAM, DAILY
     Route: 065
  6. ARIPIPRAZOLE. [Suspect]
     Active Substance: ARIPIPRAZOLE
     Indication: PSYCHOTIC DISORDER
     Dosage: 30 MILLIGRAM, DAILY
     Route: 065

REACTIONS (2)
  - Condition aggravated [Unknown]
  - Treatment noncompliance [Unknown]
